FAERS Safety Report 20175584 (Version 2)
Quarter: 2021Q4

REPORT INFORMATION
  Report Type: Report from Study
  Country: CA (occurrence: CA)
  Receive Date: 20211213
  Receipt Date: 20211220
  Transmission Date: 20220303
  Serious: Yes (Other)
  Sender: FDA-Public Use
  Company Number: CA-NOVARTISPH-NVSC2021CA279861

PATIENT
  Sex: Female

DRUGS (11)
  1. OXYCODONE [Suspect]
     Active Substance: OXYCODONE
     Indication: Product used for unknown indication
     Dosage: 5 MG
     Route: 065
  2. INDOMETHACIN [Suspect]
     Active Substance: INDOMETHACIN
     Indication: Product used for unknown indication
     Dosage: UNK
     Route: 048
     Dates: start: 2016, end: 2016
  3. INDOMETHACIN [Suspect]
     Active Substance: INDOMETHACIN
     Dosage: 50 MG, TID
     Route: 065
     Dates: end: 20181201
  4. CLOBETASOL [Suspect]
     Active Substance: CLOBETASOL
     Indication: Product used for unknown indication
     Dosage: UNK
     Route: 061
     Dates: start: 2010, end: 202112
  5. ACETAMINOPHEN [Concomitant]
     Active Substance: ACETAMINOPHEN
     Indication: Product used for unknown indication
     Dosage: 325 MG
     Route: 065
  6. NAPROXEN [Concomitant]
     Active Substance: NAPROXEN
     Indication: Product used for unknown indication
     Dosage: UNK UNK, BID
     Route: 065
  7. MELOXICAM [Concomitant]
     Active Substance: MELOXICAM
     Indication: Product used for unknown indication
     Dosage: 7.5 MG
     Route: 065
  8. HUMIRA [Concomitant]
     Active Substance: ADALIMUMAB
     Indication: Product used for unknown indication
     Dosage: UNK UNK, BIW
     Route: 065
     Dates: start: 2019, end: 20211128
  9. OXYCODONE HYDROCHLORIDE [Concomitant]
     Active Substance: OXYCODONE HYDROCHLORIDE
     Indication: Product used for unknown indication
     Dosage: UNK, QID
     Route: 048
     Dates: start: 20211203
  10. ALEVE EASY OPEN ARTHRITIS CAP [Concomitant]
     Active Substance: NAPROXEN SODIUM
     Indication: Product used for unknown indication
     Dosage: UNK
     Route: 048
     Dates: start: 2010
  11. CYCLOBENZAPRINE [Concomitant]
     Active Substance: CYCLOBENZAPRINE
     Indication: Product used for unknown indication
     Dosage: UNK
     Route: 048
     Dates: start: 2016

REACTIONS (10)
  - C-reactive protein increased [Unknown]
  - Red blood cell sedimentation rate increased [Unknown]
  - Bone marrow oedema [Unknown]
  - Osteosclerosis [Unknown]
  - Bone erosion [Unknown]
  - Musculoskeletal stiffness [Not Recovered/Not Resolved]
  - Eczema [Unknown]
  - Carpal tunnel syndrome [Unknown]
  - Pain [Not Recovered/Not Resolved]
  - Drug ineffective [Unknown]

NARRATIVE: CASE EVENT DATE: 20100101
